FAERS Safety Report 8595881 (Version 3)
Quarter: 2013Q3

REPORT INFORMATION
  Report Type: Spontaneous
  Country: US (occurrence: US)
  Receive Date: 20120605
  Receipt Date: 20130722
  Transmission Date: 20140515
  Serious: Yes (Other)
  Sender: FDA-Public Use
  Company Number: US-ASTRAZENECA-2012SE35690

PATIENT
  Sex: Female
  Weight: 57.6 kg

DRUGS (13)
  1. NEXIUM [Suspect]
     Indication: GASTROOESOPHAGEAL REFLUX DISEASE
     Route: 048
  2. PREVACID [Concomitant]
     Indication: GASTROOESOPHAGEAL REFLUX DISEASE
  3. PEPCID [Concomitant]
  4. ALBUTEROL [Concomitant]
     Indication: RESPIRATORY DISORDER
  5. LOTREL [Concomitant]
     Indication: BLOOD PRESSURE ABNORMAL
  6. ASPIRIN [Concomitant]
     Indication: CARDIAC DISORDER
  7. CALCIUM [Concomitant]
  8. LIPITOR [Concomitant]
  9. PLETAL [Concomitant]
  10. DIGOXIN [Concomitant]
     Indication: CARDIAC DISORDER
  11. BUDESONIDE [Concomitant]
     Indication: RESPIRATORY DISORDER
  12. VITAMIN D [Concomitant]
     Dosage: 500
  13. PREDNISONE [Concomitant]

REACTIONS (14)
  - Hip fracture [Unknown]
  - Lymphoma [Unknown]
  - Osteoporosis [Unknown]
  - Aortic disorder [Unknown]
  - Arthritis [Unknown]
  - Bone pain [Unknown]
  - Multiple fractures [Unknown]
  - Calcium deficiency [Unknown]
  - Fall [Unknown]
  - Rib fracture [Unknown]
  - Joint injury [Unknown]
  - Spinal fracture [Unknown]
  - Vitamin D deficiency [Unknown]
  - Depression [Unknown]
